FAERS Safety Report 18976410 (Version 1)
Quarter: 2021Q1

REPORT INFORMATION
  Report Type: Spontaneous
  Country: US (occurrence: US)
  Receive Date: 20210305
  Receipt Date: 20210305
  Transmission Date: 20210420
  Serious: No
  Sender: FDA-Public Use
  Company Number: US-GALDERMA-US2020041861

PATIENT
  Age: 39 Year
  Sex: Female

DRUGS (10)
  1. PROACTIV MD ADAPALENE ACNE TREATMENT [Suspect]
     Active Substance: ADAPALENE
     Indication: SKIN HYPERPIGMENTATION
  2. PROACTIV MD DAILY OIL CONTROL SPF 30 [Suspect]
     Active Substance: AVOBENZONE\OCTISALATE\OCTOCRYLENE
     Indication: SKIN HYPERPIGMENTATION
  3. PROACTIV MD DEEP CLEANSING FACE WASH [Concomitant]
     Active Substance: COSMETICS
     Indication: ACNE
     Route: 061
     Dates: start: 20200804
  4. PROACTIV MD DAILY OIL CONTROL SPF 30 [Suspect]
     Active Substance: AVOBENZONE\OCTISALATE\OCTOCRYLENE
     Indication: ACNE
     Route: 061
     Dates: start: 20200804
  5. PROACTIV MD DEEP CLEANSING FACE WASH [Concomitant]
     Active Substance: COSMETICS
     Indication: SKIN HYPERPIGMENTATION
  6. PROACTIV MD ADAPALENE ACNE TREATMENT [Suspect]
     Active Substance: ADAPALENE
     Indication: ACNE
     Dosage: 0.1%
     Route: 061
     Dates: start: 20200804
  7. PROACTIV REDNESS RELIEF SERUM [Concomitant]
     Indication: SKIN HYPERPIGMENTATION
  8. PROACTIV DEEP CLEANSING WASH [Concomitant]
     Active Substance: SALICYLIC ACID
     Indication: ACNE
     Route: 061
     Dates: start: 20200804
  9. PROACTIV DEEP CLEANSING WASH [Concomitant]
     Active Substance: SALICYLIC ACID
     Indication: SKIN HYPERPIGMENTATION
  10. PROACTIV REDNESS RELIEF SERUM [Concomitant]
     Indication: ACNE
     Route: 061
     Dates: start: 20200804

REACTIONS (3)
  - Condition aggravated [Not Recovered/Not Resolved]
  - Acne [Not Recovered/Not Resolved]
  - Skin hyperpigmentation [Not Recovered/Not Resolved]

NARRATIVE: CASE EVENT DATE: 20200804
